FAERS Safety Report 5378689-2 (Version None)
Quarter: 2007Q3

REPORT INFORMATION
  Report Type: 
  Country: None (occurrence: None)
  Receive Date: 20070702
  Receipt Date: 20070702
  Transmission Date: 20080115
  Serious: Yes (Other)
  Sender: FDA-Public Use
  Company Number: None

PATIENT
  Sex: Female
  Weight: 74.8435 kg

DRUGS (1)
  1. COLGATE TOTAL CLEAN MINT-PASTE 5OZ [Suspect]
     Indication: DENTAL CARE
     Dosage: PEA SIZE 3 USES
     Dates: start: 20070609, end: 20070628

REACTIONS (8)
  - DRUG INEFFECTIVE [None]
  - ERYTHEMA [None]
  - LIP EXFOLIATION [None]
  - MOUTH ULCERATION [None]
  - ORAL FUNGAL INFECTION [None]
  - ORAL INFECTION [None]
  - ORAL PAIN [None]
  - TONGUE EXFOLIATION [None]
